FAERS Safety Report 23342951 (Version 1)
Quarter: 2023Q4

REPORT INFORMATION
  Report Type: Spontaneous
  Country: UA (occurrence: UA)
  Receive Date: 20231227
  Receipt Date: 20231227
  Transmission Date: 20240110
  Serious: Yes (Other)
  Sender: FDA-Public Use
  Company Number: UA-AMGEN-UKRSP2023229440

PATIENT
  Age: 16 Year
  Sex: Female

DRUGS (5)
  1. XGEVA [Suspect]
     Active Substance: DENOSUMAB
     Indication: Bone giant cell tumour
     Dosage: 120 MILLIGRAM, LOADING DOSE ON DAY 8 (DURING THE FIRST MONTH)
     Route: 058
  2. XGEVA [Suspect]
     Active Substance: DENOSUMAB
     Dosage: 120 MILLIGRAM, Q4WK (ONCE A MONTH) (12 INJECTIONS)
     Route: 058
  3. XGEVA [Suspect]
     Active Substance: DENOSUMAB
     Dosage: 120 MILLIGRAM, Q3MO (MAINTENANCE THERAPY)
     Route: 058
  4. CALCIUM [Concomitant]
     Active Substance: CALCIUM
     Dosage: 1000 MILLIGRAM, QD
  5. VITAMIN D [Concomitant]
     Active Substance: VITAMIN D NOS
     Dosage: 400 MILLIGRAM, QD

REACTIONS (5)
  - Bone giant cell tumour [Unknown]
  - Hypocalcaemia [Unknown]
  - Myalgia [Unknown]
  - Fatigue [Unknown]
  - Off label use [Unknown]
